FAERS Safety Report 24156824 (Version 1)
Quarter: 2024Q3

REPORT INFORMATION
  Report Type: Spontaneous
  Country: US (occurrence: None)
  Receive Date: 20240730
  Receipt Date: 20240730
  Transmission Date: 20241017
  Serious: Yes (Hospitalization)
  Sender: Public
  Company Number: None

PATIENT
  Age: 5 Year
  Sex: Female
  Weight: 16.8 kg

DRUGS (4)
  1. HUMIRA [Suspect]
     Active Substance: ADALIMUMAB
     Indication: Juvenile idiopathic arthritis
     Dosage: 20 MG EVERY 14 DAYS SUBCUTANEOUS ?
     Route: 058
     Dates: start: 20240319, end: 20240722
  2. METHOTREXATE [Suspect]
     Active Substance: METHOTREXATE
     Indication: Juvenile idiopathic arthritis
     Dosage: 15 MG WEEKLY SUBCUTANEOUS
     Route: 058
     Dates: start: 20240131, end: 20240722
  3. Meloxicam 3.75 mg [Concomitant]
     Dates: start: 20231128
  4. FOLIC ACID [Concomitant]
     Active Substance: FOLIC ACID
     Dates: start: 20240131

REACTIONS (2)
  - Intracranial pressure increased [None]
  - Adverse drug reaction [None]

NARRATIVE: CASE EVENT DATE: 20240722
